FAERS Safety Report 15743860 (Version 1)
Quarter: 2018Q4

REPORT INFORMATION
  Report Type: Spontaneous
  Country: US (occurrence: US)
  Receive Date: 20181219
  Receipt Date: 20181219
  Transmission Date: 20190205
  Serious: Yes (Life-Threatening)
  Sender: FDA-Public Use
  Company Number: None

PATIENT
  Age: 25 Year
  Sex: Female
  Weight: 96 kg

DRUGS (1)
  1. NUVARING [Suspect]
     Active Substance: ETHINYL ESTRADIOL\ETONOGESTREL

REACTIONS (7)
  - Fibrin D dimer increased [None]
  - Brain natriuretic peptide increased [None]
  - Cough [None]
  - Throat irritation [None]
  - Pulmonary embolism [None]
  - Troponin increased [None]
  - White blood cell count increased [None]

NARRATIVE: CASE EVENT DATE: 20181217
